FAERS Safety Report 25199135 (Version 1)
Quarter: 2025Q2

REPORT INFORMATION
  Report Type: Spontaneous
  Country: GB (occurrence: GB)
  Receive Date: 20250415
  Receipt Date: 20250415
  Transmission Date: 20250717
  Serious: Yes (Other)
  Sender: AUROBINDO
  Company Number: GB-MHRA-MED-202504091519567290-NMFQG

PATIENT
  Age: 18 Year
  Sex: Female
  Weight: 53 kg

DRUGS (1)
  1. SERTRALINE [Suspect]
     Active Substance: SERTRALINE HYDROCHLORIDE
     Indication: Depression
     Route: 065
     Dates: start: 20241117, end: 20250212

REACTIONS (2)
  - Brain fog [Recovered/Resolved with Sequelae]
  - Dissociation [Recovered/Resolved with Sequelae]

NARRATIVE: CASE EVENT DATE: 20241207
